FAERS Safety Report 17724821 (Version 1)
Quarter: 2020Q2

REPORT INFORMATION
  Report Type: Spontaneous
  Country: DE (occurrence: DE)
  Receive Date: 20200429
  Receipt Date: 20200429
  Transmission Date: 20200714
  Serious: Yes (Hospitalization)
  Sender: FDA-Public Use
  Company Number: DE-MYLANLABS-2020M1042421

PATIENT
  Age: 81 Year
  Sex: Female

DRUGS (5)
  1. TORASEMIDE [Suspect]
     Active Substance: TORSEMIDE
     Indication: PRODUCT USED FOR UNKNOWN INDICATION
     Dosage: 10 MG, 1-1-0-0, TABLETTEN
     Route: 048
  2. MIRTAZAPINE. [Suspect]
     Active Substance: MIRTAZAPINE
     Indication: PRODUCT USED FOR UNKNOWN INDICATION
     Dosage: 30 MG, 0-0-0-1
     Route: 048
  3. OLANZAPINE. [Suspect]
     Active Substance: OLANZAPINE
     Indication: PRODUCT USED FOR UNKNOWN INDICATION
     Dosage: 2.5 MG, 1-0-1-0
     Route: 048
  4. TROSPIUM [Concomitant]
     Active Substance: TROSPIUM
     Dosage: 60 MG, 0-0-0-1
     Route: 048
  5. ABILIFY [Suspect]
     Active Substance: ARIPIPRAZOLE
     Indication: PRODUCT USED FOR UNKNOWN INDICATION
     Dosage: 10 MG, 2-0-0-0
     Route: 048

REACTIONS (7)
  - Dysuria [Unknown]
  - Fall [Unknown]
  - Oedema peripheral [Unknown]
  - General physical health deterioration [Unknown]
  - Tachycardia [Unknown]
  - Dizziness [Unknown]
  - Gait inability [Unknown]
